FAERS Safety Report 5813542-9 (Version None)
Quarter: 2008Q3

REPORT INFORMATION
  Report Type: 
  Country: None (occurrence: None)
  Receive Date: 20080717
  Receipt Date: 20070517
  Transmission Date: 20090109
  Serious: Yes (Life-Threatening, Hospitalization)
  Sender: FDA-Public Use
  Company Number: TR-MERCK-0705TUR00003

PATIENT
  Age: 39 Year
  Sex: Female
  Weight: 57 kg

DRUGS (4)
  1. SINGULAIR [Suspect]
     Indication: ASTHMA
     Route: 048
     Dates: start: 20061004, end: 20070201
  2. BUDESONIDE [Concomitant]
     Indication: ASTHMA
  3. PELARGONIUM SIDOIDES [Suspect]
     Route: 048
     Dates: start: 20070124, end: 20070131
  4. FORMOTEROL FUMARATE [Concomitant]
     Indication: ASTHMA

REACTIONS (4)
  - ALLERGIC GRANULOMATOUS ANGIITIS [None]
  - CORONARY ARTERY OCCLUSION [None]
  - PERICARDIAL EFFUSION [None]
  - PNEUMONIA [None]
